FAERS Safety Report 9251652 (Version 1)
Quarter: 2013Q1

REPORT INFORMATION
  Report Type: Spontaneous
  Country: US (occurrence: None)
  Receive Date: 20130305
  Receipt Date: 20130305
  Transmission Date: 20140127
  Serious: Yes (Other)
  Sender: FDA-Public Use
  Company Number: 163-21880-12091227

PATIENT
  Age: 84 Year
  Sex: Female

DRUGS (4)
  1. REVLIMID (LENALIDOMIDE) [Suspect]
     Indication: PLASMA CELL MYELOMA
     Route: 048
     Dates: start: 20120703, end: 2012
  2. ALENDRONATE SODIUM [Concomitant]
  3. HYDROCHLOROTHIAZIDE [Concomitant]
  4. MECLIZINE HCL (MECLIZINE HYDROCHLORIDE) [Concomitant]

REACTIONS (1)
  - Full blood count decreased [None]
